APPROVED DRUG PRODUCT: EVEROLIMUS
Active Ingredient: EVEROLIMUS
Strength: 0.25MG
Dosage Form/Route: TABLET;ORAL
Application: A214138 | Product #001 | TE Code: AB
Applicant: ALKEM LABORATORIES LTD
Approved: Nov 26, 2021 | RLD: No | RS: No | Type: RX